FAERS Safety Report 17136900 (Version 1)
Quarter: 2019Q4

REPORT INFORMATION
  Report Type: Spontaneous
  Country: US (occurrence: US)
  Receive Date: 20191210
  Receipt Date: 20191210
  Transmission Date: 20200122
  Serious: No
  Sender: FDA-Public Use
  Company Number: US-ACTELION-A-NJ2019-196850

PATIENT
  Age: 51 Year
  Sex: Female

DRUGS (1)
  1. UPTRAVI [Suspect]
     Active Substance: SELEXIPAG
     Indication: PRODUCT USED FOR UNKNOWN INDICATION
     Route: 048

REACTIONS (5)
  - Unevaluable event [Unknown]
  - Upper respiratory tract congestion [Unknown]
  - Dyspepsia [Unknown]
  - Headache [Unknown]
  - Flushing [Unknown]

NARRATIVE: CASE EVENT DATE: 201911
